FAERS Safety Report 8564959-3 (Version None)
Quarter: 2012Q3

REPORT INFORMATION
  Report Type: 
  Country: None (occurrence: None)
  Receive Date: 20120803
  Receipt Date: 20120723
  Transmission Date: 20120928
  Serious: Yes (Other)
  Sender: FDA-Public Use
  Company Number: US-ROCHE-1067396

PATIENT
  Sex: Male
  Weight: 90.6 kg

DRUGS (20)
  1. PEGASYS [Suspect]
     Indication: HEPATITIS C
     Route: 058
     Dates: start: 20120119, end: 20120309
  2. RANITIDINE [Concomitant]
  3. GS 5885 (HCV NS5A INHIBITOR) [Suspect]
     Route: 048
     Dates: start: 20120119, end: 20120313
  4. PEGASYS [Suspect]
     Route: 058
     Dates: start: 20111229, end: 20120118
  5. GS 5885 (HCV NS5A INHIBITOR) [Suspect]
     Indication: HEPATITIS C
     Route: 048
     Dates: start: 20111229, end: 20120118
  6. ASPIRIN [Concomitant]
     Dates: start: 20040101, end: 20120329
  7. SULINDAC [Concomitant]
     Dates: start: 20111218, end: 20120327
  8. CODEINE COUGH SYRUP (UNK INGREDIENTS) [Concomitant]
     Dates: start: 20120119, end: 20120218
  9. PLACEBO [Suspect]
     Indication: HEPATITIS C
     Route: 048
     Dates: start: 20111229, end: 20120118
  10. GS 9451 (NS3 PROTEASE INHIBITOR) [Suspect]
     Route: 048
     Dates: start: 20120119, end: 20120313
  11. TYLENOL (CAPLET) [Concomitant]
     Dates: start: 20120118
  12. CELEXA [Concomitant]
  13. CITALOPRAM HYDROBROMIDE [Concomitant]
  14. AZITHROMYCIN [Concomitant]
  15. COPEGUS [Suspect]
     Route: 048
     Dates: start: 20111229, end: 20120118
  16. ZITHROMAX [Concomitant]
     Dates: start: 20120221, end: 20120225
  17. COPEGUS [Suspect]
     Indication: HEPATITIS C
     Route: 048
     Dates: start: 20120119, end: 20120313
  18. GS 9451 (NS3 PROTEASE INHIBITOR) [Suspect]
     Indication: HEPATITIS C
     Route: 048
     Dates: start: 20111229, end: 20120118
  19. CELEXA [Concomitant]
     Dates: start: 20120118
  20. ACETAMINOPHEN [Concomitant]

REACTIONS (6)
  - RASH [None]
  - DECREASED APPETITE [None]
  - HYPOGEUSIA [None]
  - SENSORIMOTOR DISORDER [None]
  - VISUAL IMPAIRMENT [None]
  - DIZZINESS [None]
